FAERS Safety Report 11114530 (Version 3)
Quarter: 2015Q2

REPORT INFORMATION
  Report Type: Spontaneous
  Country: JP (occurrence: JP)
  Receive Date: 20150515
  Receipt Date: 20150625
  Transmission Date: 20150821
  Serious: Yes (Life-Threatening, Hospitalization)
  Sender: FDA-Public Use
  Company Number: JP-ROCHE-1577860

PATIENT
  Age: 84 Year
  Sex: Male
  Weight: 54 kg

DRUGS (8)
  1. ROCEPHIN [Suspect]
     Active Substance: CEFTRIAXONE SODIUM
     Indication: URINARY TRACT INFECTION
     Route: 041
     Dates: start: 20150320, end: 20150330
  2. LUNESTA [Concomitant]
     Active Substance: ESZOPICLONE
     Indication: INSOMNIA
     Route: 048
     Dates: end: 20150320
  3. THEOLONG [Concomitant]
     Active Substance: THEOPHYLLINE ANHYDROUS
     Indication: ASTHMA
     Route: 048
     Dates: end: 20150320
  4. EXELON [Concomitant]
     Active Substance: RIVASTIGMINE TARTRATE
     Indication: DEMENTIA ALZHEIMER^S TYPE
     Route: 062
     Dates: end: 20150320
  5. PRANLUKAST [Concomitant]
     Active Substance: PRANLUKAST
     Indication: ASTHMA
     Route: 048
     Dates: end: 20150320
  6. EXFORGE [Concomitant]
     Active Substance: AMLODIPINE BESYLATE\VALSARTAN
     Indication: HYPERTENSION
     Dosage: VALSARTAN 80MG AND AMLODIPINE 5MG
     Route: 048
     Dates: end: 20150320
  7. AVOLVE [Concomitant]
     Active Substance: DUTASTERIDE
     Indication: BENIGN PROSTATIC HYPERPLASIA
     Route: 048
     Dates: end: 20150320
  8. URIEF [Concomitant]
     Active Substance: SILODOSIN
     Indication: BENIGN PROSTATIC HYPERPLASIA
     Route: 048
     Dates: end: 20150320

REACTIONS (8)
  - Glossoptosis [Recovered/Resolved]
  - Hepatic function abnormal [Recovered/Resolved]
  - Altered state of consciousness [Recovered/Resolved]
  - Breath sounds abnormal [Recovered/Resolved]
  - Cholecystitis [Recovered/Resolved]
  - Muscle spasms [Recovered/Resolved]
  - Bile duct stone [Recovered/Resolved]
  - Cholelithiasis [Recovered/Resolved]

NARRATIVE: CASE EVENT DATE: 20150330
